FAERS Safety Report 5902499-8 (Version None)
Quarter: 2008Q3

REPORT INFORMATION
  Report Type: 
  Country: None (occurrence: None)
  Receive Date: 20080929
  Receipt Date: 20080924
  Transmission Date: 20090109
  Serious: Yes (Hospitalization)
  Sender: FDA-Public Use
  Company Number: FR-ABBOTT-08P-056-0473999-00

PATIENT
  Age: 82 Year
  Sex: Male

DRUGS (13)
  1. LIPANTHYL [Suspect]
     Indication: ARRHYTHMIA
     Route: 048
     Dates: end: 20080523
  2. LIPANTHYL [Interacting]
     Indication: ATRIAL FIBRILLATION
  3. SEROPLEX [Interacting]
     Indication: DRUG USE FOR UNKNOWN INDICATION
     Route: 048
     Dates: end: 20080523
  4. ACENOCOUMAROL [Interacting]
     Indication: ARRHYTHMIA
     Route: 048
     Dates: start: 20080201, end: 20080523
  5. ACENOCOUMAROL [Interacting]
     Indication: ATRIAL FIBRILLATION
  6. CLOPIDOGREL [Concomitant]
     Indication: DRUG USE FOR UNKNOWN INDICATION
     Route: 048
  7. METFORMIN HCL [Concomitant]
     Indication: TYPE 2 DIABETES MELLITUS
     Route: 048
  8. OMEPRAZOLE [Concomitant]
     Indication: DRUG USE FOR UNKNOWN INDICATION
     Route: 048
  9. FUROSEMIDE [Concomitant]
     Indication: DRUG USE FOR UNKNOWN INDICATION
     Route: 048
  10. CHONDROITIN SULFATE SODIUM [Concomitant]
     Indication: OSTEOARTHRITIS
     Route: 048
  11. TAMSULOSIN HCL [Concomitant]
     Indication: DRUG USE FOR UNKNOWN INDICATION
     Route: 048
  12. ULTRACET [Concomitant]
     Indication: DRUG USE FOR UNKNOWN INDICATION
     Route: 048
  13. ACEON [Concomitant]
     Indication: DRUG USE FOR UNKNOWN INDICATION
     Route: 048

REACTIONS (6)
  - DEMENTIA [None]
  - DRUG INTERACTION [None]
  - HAEMOPTYSIS [None]
  - HYPOTENSION [None]
  - INTERNATIONAL NORMALISED RATIO INCREASED [None]
  - OVERDOSE [None]
